FAERS Safety Report 10065183 (Version 1)
Quarter: 2014Q1

REPORT INFORMATION
  Report Type: Spontaneous
  Country: US (occurrence: None)
  Receive Date: 20140328
  Receipt Date: 20140328
  Transmission Date: 20141002
  Serious: No
  Sender: FDA-Public Use
  Company Number: CABO-14003954

PATIENT
  Age: 58 Year
  Sex: Female

DRUGS (1)
  1. COMETRIQ (CABOZANTINIB) CAPSULE [Suspect]
     Indication: MENINGIOMA MALIGNANT
     Route: 048
     Dates: start: 20131206

REACTIONS (4)
  - Dry mouth [None]
  - Fatigue [None]
  - Stomatitis [None]
  - Off label use [None]
